FAERS Safety Report 9895394 (Version 1)
Quarter: 2014Q1

REPORT INFORMATION
  Report Type: Spontaneous
  Country: US (occurrence: US)
  Receive Date: 20140213
  Receipt Date: 20140213
  Transmission Date: 20141002
  Serious: No
  Sender: FDA-Public Use
  Company Number: US-BRISTOL-MYERS SQUIBB COMPANY-17354408

PATIENT
  Age: 51 Year
  Sex: Male
  Weight: 147.39 kg

DRUGS (1)
  1. ORENCIA [Suspect]
     Indication: RHEUMATOID ARTHRITIS
     Dosage: LAST TREATMENT DRUG:10JAN2013
     Dates: start: 201208

REACTIONS (1)
  - Influenza [Unknown]
